FAERS Safety Report 23351487 (Version 1)
Quarter: 2023Q4

REPORT INFORMATION
  Report Type: Spontaneous
  Country: US (occurrence: None)
  Receive Date: 20231229
  Receipt Date: 20231229
  Transmission Date: 20240109
  Serious: No
  Sender: FDA-Public Use
  Company Number: None

PATIENT
  Sex: Male

DRUGS (1)
  1. DEFERASIROX [Suspect]
     Active Substance: DEFERASIROX
     Indication: Myelodysplastic syndrome with excess blasts
     Dosage: FREQUENCY : DAILY;?
     Route: 048
     Dates: start: 202311

REACTIONS (11)
  - Abdominal pain [None]
  - Nausea [None]
  - Diarrhoea [None]
  - Pyrexia [None]
  - White blood cell count increased [None]
  - Hepatic cyst [None]
  - Renal cyst [None]
  - Spleen disorder [None]
  - Inflammation [None]
  - Feeling abnormal [None]
  - Stem cell transplant [None]
